FAERS Safety Report 5654780-8 (Version None)
Quarter: 2008Q1

REPORT INFORMATION
  Report Type: 
  Country: None (occurrence: None)
  Receive Date: 20080307
  Receipt Date: 20070710
  Transmission Date: 20080703
  Serious: No
  Sender: FDA-Public Use
  Company Number: A0662816A

PATIENT
  Age: 42 Year
  Sex: Female

DRUGS (5)
  1. REQUIP [Suspect]
     Indication: RESTLESS LEGS SYNDROME
     Dosage: 2MG AT NIGHT
     Route: 048
  2. ZYRTEC [Concomitant]
  3. SINGULAIR [Concomitant]
  4. ALLERGY SHOTS [Concomitant]
  5. BIRTH CONTROL PILLS [Concomitant]

REACTIONS (1)
  - VISION BLURRED [None]
